FAERS Safety Report 7231848-6 (Version None)
Quarter: 2011Q1

REPORT INFORMATION
  Report Type: 
  Country: None (occurrence: None)
  Receive Date: 20110118
  Receipt Date: 20110114
  Transmission Date: 20110831
  Serious: Yes (Death, Hospitalization)
  Sender: FDA-Public Use
  Company Number: JP-ASTRAZENECA-2010SE55465

PATIENT
  Age: 59 Year
  Sex: Male
  Weight: 55 kg

DRUGS (11)
  1. DIGOSIN [Concomitant]
     Indication: ATRIAL FIBRILLATION
     Route: 048
     Dates: start: 20101012
  2. MUCODYNE [Concomitant]
     Indication: BRONCHITIS
     Route: 048
     Dates: start: 20100422
  3. HARNAL D [Concomitant]
     Indication: BENIGN PROSTATIC HYPERPLASIA
     Route: 048
     Dates: start: 20101012
  4. HERBESSER R [Concomitant]
     Indication: ATRIAL FIBRILLATION
     Route: 048
     Dates: start: 20101012
  5. OXYCONTIN [Concomitant]
     Indication: CANCER PAIN
     Route: 048
     Dates: start: 20101109
  6. LOXONIN [Concomitant]
     Indication: CANCER PAIN
     Route: 048
     Dates: start: 20100422
  7. IRESSA [Suspect]
     Indication: LUNG ADENOCARCINOMA
     Route: 048
     Dates: start: 20100921, end: 20101108
  8. MUCOSTA [Concomitant]
     Indication: GASTRITIS
     Route: 048
     Dates: start: 20100422
  9. AQUPLA [Suspect]
     Route: 065
     Dates: start: 20100507, end: 20100525
  10. DEPAKENE [Concomitant]
     Indication: CONVULSION
     Route: 048
     Dates: start: 20100527
  11. PREDNISOLONE [Concomitant]
     Indication: DYSPNOEA
     Route: 048
     Dates: start: 20101018

REACTIONS (8)
  - ANAPHYLACTIC REACTION [None]
  - LUNG DISORDER [None]
  - INTERSTITIAL LUNG DISEASE [None]
  - ACUTE RESPIRATORY FAILURE [None]
  - CONVULSION [None]
  - RASH [None]
  - DYSPNOEA [None]
  - PLEURAL EFFUSION [None]
